FAERS Safety Report 18543985 (Version 2)
Quarter: 2020Q4

REPORT INFORMATION
  Report Type: Spontaneous
  Country: US (occurrence: US)
  Receive Date: 20201124
  Receipt Date: 20201217
  Transmission Date: 20210114
  Serious: Yes (Other)
  Sender: FDA-Public Use
  Company Number: US-JNJFOC-20201121911

PATIENT
  Age: 50 Year
  Sex: Male
  Weight: 200 kg

DRUGS (6)
  1. LORAZEPAM. [Concomitant]
     Active Substance: LORAZEPAM
     Indication: ANXIETY
     Dates: start: 2017
  2. IBUPROFEN. [Concomitant]
     Active Substance: IBUPROFEN
     Indication: SCHIZOAFFECTIVE DISORDER
  3. INVEGA TRINZA [Suspect]
     Active Substance: PALIPERIDONE PALMITATE
     Indication: SCHIZOAFFECTIVE DISORDER
     Dosage: RECEIVED 12 DOSES
     Route: 030
     Dates: start: 2017, end: 202009
  4. INVEGA TRINZA [Suspect]
     Active Substance: PALIPERIDONE PALMITATE
  5. INVEGA TRINZA [Suspect]
     Active Substance: PALIPERIDONE PALMITATE
  6. FLUTICASONE. [Concomitant]
     Active Substance: FLUTICASONE
     Indication: SCHIZOAFFECTIVE DISORDER

REACTIONS (5)
  - Electrocardiogram QT prolonged [Unknown]
  - Ventricular extrasystoles [Unknown]
  - Off label use [Unknown]
  - Colonoscopy [Unknown]
  - Product use in unapproved indication [Unknown]

NARRATIVE: CASE EVENT DATE: 20200928
